FAERS Safety Report 10163885 (Version 1)
Quarter: 2014Q2

REPORT INFORMATION
  Report Type: Report from Study
  Country: US (occurrence: US)
  Receive Date: 20140510
  Receipt Date: 20140510
  Transmission Date: 20141212
  Serious: Yes (Hospitalization)
  Sender: FDA-Public Use
  Company Number: PHEH2014US009419

PATIENT
  Sex: Female
  Weight: 72.5 kg

DRUGS (11)
  1. TOBI [Suspect]
     Dosage: 112 MG, BID
     Route: 055
     Dates: start: 201402
  2. CEFTAZIDIME [Concomitant]
     Dosage: UNK UKN, UNK
  3. ZITHROMAX [Concomitant]
     Dosage: UNK UKN, UNK
  4. GABAPENIN [Concomitant]
     Dosage: UNK UKN, UNK
  5. XOPENEX [Concomitant]
     Dosage: UNK UKN, UNK
  6. DIGOXIN [Concomitant]
     Dosage: UNK UKN, UNK
  7. MEPHYTON [Concomitant]
     Dosage: UNK UKN, UNK
  8. CARDIZEM [Concomitant]
     Dosage: UNK UKN, UNK
  9. METENIX [Concomitant]
     Dosage: UNK UKN, UNK
  10. ZANTAC [Concomitant]
     Dosage: UNK UKN, UNK
  11. PROTONIX [Concomitant]
     Dosage: UNK UKN, UNK

REACTIONS (3)
  - Cystic fibrosis [Recovering/Resolving]
  - Condition aggravated [Recovering/Resolving]
  - Viral infection [Recovering/Resolving]
